FAERS Safety Report 6657241-2 (Version None)
Quarter: 2010Q1

REPORT INFORMATION
  Report Type: 
  Country: None (occurrence: None)
  Receive Date: 20100325
  Receipt Date: 20100310
  Transmission Date: 20100710
  Serious: Yes (Death)
  Sender: FDA-Public Use
  Company Number: 2010000838

PATIENT
  Age: 70 Year
  Sex: Female

DRUGS (9)
  1. ERLOTINIB HYDROCHLORIDE [Suspect]
     Indication: MYELODYSPLASTIC SYNDROME
     Dosage: 100 MG, ORAL
     Route: 048
     Dates: start: 20100202, end: 20100228
  2. TYLENOL [Concomitant]
  3. ALBUTEROL (SALBUTALMOL) [Concomitant]
  4. DIGOXIN [Concomitant]
  5. METOPROLOL (METOPROLOL) [Concomitant]
  6. COMPAZINE [Concomitant]
  7. CARAFATE [Concomitant]
  8. NAPROSYN [Concomitant]
  9. DECITABINE (DECITABINE) [Concomitant]

REACTIONS (4)
  - CEREBRAL HAEMORRHAGE [None]
  - HAEMOGLOBIN DECREASED [None]
  - PLATELET COUNT ABNORMAL [None]
  - WHITE BLOOD CELL COUNT DECREASED [None]
